FAERS Safety Report 16631171 (Version 2)
Quarter: 2019Q3

REPORT INFORMATION
  Report Type: Spontaneous
  Country: FR (occurrence: FR)
  Receive Date: 20190725
  Receipt Date: 20190726
  Transmission Date: 20191004
  Serious: Yes (Other)
  Sender: FDA-Public Use
  Company Number: FR-SUN PHARMACEUTICAL INDUSTRIES LTD-2019RR-215133

PATIENT
  Age: 55 Year
  Sex: Male

DRUGS (3)
  1. ADENURIC 80 MG, COMPRIME PELLICULE [Suspect]
     Active Substance: FEBUXOSTAT
     Indication: GOUT
     Dosage: 1 MILLIGRAM, DAILY
     Route: 048
     Dates: start: 20190311, end: 20190408
  2. ALLOPURINOL. [Suspect]
     Active Substance: ALLOPURINOL
     Indication: GOUT
     Dosage: 300 MILLIGRAM, DAILY
     Route: 048
     Dates: start: 201807, end: 20190311
  3. PREDNISONE. [Suspect]
     Active Substance: PREDNISONE
     Indication: GOUT
     Dosage: 5 MILLIGRAM, DAILY
     Route: 048
     Dates: start: 201810, end: 20190408

REACTIONS (5)
  - Conjunctivitis [Recovering/Resolving]
  - Erectile dysfunction [Recovered/Resolved]
  - Back pain [Recovering/Resolving]
  - Dysuria [Recovered/Resolved]
  - Rash macular [Recovering/Resolving]

NARRATIVE: CASE EVENT DATE: 2018
